FAERS Safety Report 5479747-4 (Version None)
Quarter: 2007Q4

REPORT INFORMATION
  Report Type: 
  Country: None (occurrence: None)
  Receive Date: 20071008
  Receipt Date: 20070926
  Transmission Date: 20080405
  Serious: Yes (Hospitalization)
  Sender: FDA-Public Use
  Company Number: US-SHR-US-2006-023998

PATIENT
  Age: 37 Year
  Sex: Male
  Weight: 129.25 kg

DRUGS (61)
  1. BETAFERON [Suspect]
     Indication: RELAPSING-REMITTING MULTIPLE SCLEROSIS
     Dosage: .25 ML, EVERY 2D
     Route: 058
     Dates: start: 20040514, end: 20040529
  2. BETAFERON [Suspect]
     Dosage: .5 ML, EVERY 2D
     Route: 058
     Dates: start: 20040531, end: 20040609
  3. BETAFERON [Suspect]
     Dosage: .75 ML, EVERY 2D
     Route: 058
     Dates: start: 20040611, end: 20040704
  4. BETAFERON [Suspect]
     Dosage: 1 ML, EVERY 2D
     Route: 058
     Dates: start: 20040706, end: 20050218
  5. BETAFERON [Suspect]
     Dosage: .25 ML, EVERY 2D
     Route: 058
     Dates: start: 20050515, end: 20050520
  6. BETAFERON [Suspect]
     Dosage: .5 ML, EVERY 2D
     Route: 058
     Dates: start: 20050522, end: 20050527
  7. BETAFERON [Suspect]
     Dosage: .75 ML, EVERY 2D
     Route: 058
     Dates: start: 20050529, end: 20050603
  8. BETAFERON [Suspect]
     Dosage: 1 ML, EVERY 2D
     Route: 058
     Dates: start: 20050605
  9. CARBAMAZEPINE [Concomitant]
     Indication: NEURALGIA
     Dosage: 300 MG, 2X/DAY
     Route: 048
     Dates: start: 20010801
  10. NORTRIPTYLINE HCL [Concomitant]
     Indication: PARAESTHESIA
     Dosage: 50 MG, BED T.
     Route: 048
     Dates: start: 20010801, end: 20040615
  11. NORTRIPTYLINE HCL [Concomitant]
     Dosage: 75 MG, BED T.
     Route: 048
     Dates: start: 20040615, end: 20041006
  12. AMANTADINE HCL [Concomitant]
     Indication: FATIGUE
     Dosage: 100 MG, 2X/DAY
     Route: 048
     Dates: start: 20031101, end: 20040630
  13. AMANTADINE HCL [Concomitant]
     Dosage: 100 MG, 2X/DAY, PRN
     Route: 048
     Dates: start: 20040915, end: 20041101
  14. ESCITALOPRAM OXALATE [Concomitant]
     Indication: DEPRESSION
     Dosage: 20 MG (1/2 - 1), 1X/DAY
     Route: 048
     Dates: start: 20040929
  15. ESCITALOPRAM OXALATE [Concomitant]
     Dosage: 10 MG DAILY
     Route: 048
     Dates: end: 20031201
  16. HYDROCHLOROTHIAZIDE W/IRBESARTAN [Concomitant]
     Indication: HYPERTENSION
     Dosage: 12.5/150 MG, 1X/DAY
     Route: 048
     Dates: start: 20040714, end: 20041215
  17. HYDROCHLOROTHIAZIDE W/IRBESARTAN [Concomitant]
     Dosage: 12.8/300 MG, 1X/DAY
     Route: 048
     Dates: start: 20041215, end: 20050304
  18. HYDROCHLOROTHIAZIDE W/IRBESARTAN [Concomitant]
     Dosage: 12.8/150 MG, 1X/DAY, PRN
     Route: 048
     Dates: start: 20050304
  19. HYDROCHLOROTHIAZIDE W/IRBESARTAN [Concomitant]
     Dosage: UNK, 1X/DAY
     Route: 048
     Dates: end: 20031101
  20. DAYQUIL ^FOX^ [Concomitant]
     Indication: SINUS DISORDER
     Dosage: UNK, AS REQ'D
     Route: 048
     Dates: start: 20030101
  21. NYQUIL [Concomitant]
     Indication: SINUS DISORDER
     Dosage: UNK, BED T. PRN
     Route: 048
     Dates: start: 20030101
  22. ACETAMINOPHEN [Concomitant]
     Indication: ARTHRITIS
     Dosage: 500 MG, AS REQ'D
     Route: 048
     Dates: start: 20030901
  23. GABAPENTIN [Concomitant]
     Indication: NEURALGIA
     Dosage: 1500 MG, 1X/DAY
     Route: 048
     Dates: start: 20030924, end: 20050813
  24. GABAPENTIN [Concomitant]
     Dosage: 600 MG, 3X/DAY
     Route: 048
     Dates: start: 20050813
  25. M.V.I. [Concomitant]
     Indication: VITAMIN SUPPLEMENTATION
     Dosage: UNK, 1X/DAY
     Route: 048
     Dates: start: 20030901
  26. VITAMIN B COMPLEX CAP [Concomitant]
     Indication: VITAMIN SUPPLEMENTATION
     Dosage: UNK, 1X/DAY
     Route: 048
     Dates: start: 20030901
  27. DIPHENHYDRAMINE HCL [Concomitant]
     Indication: PRURITUS
     Dosage: 25 MG, 1X/DAY, EVERY PM
     Route: 048
     Dates: start: 20040514, end: 20040514
  28. CAFFEINE [Concomitant]
     Dosage: 200 MG, AS REQ'D
     Route: 048
     Dates: start: 20040623, end: 20041101
  29. ALPRAZOLAM [Interacting]
     Indication: ANXIETY
     Dosage: 1 MG (1/2 - 1), 3X/DAY, PRN
     Route: 048
     Dates: start: 20040814
  30. DARVOCET [Concomitant]
     Indication: INJECTION SITE PAIN
     Dosage: 100 MG, 1-2 Q4-6HRS, AS REQ'D
     Route: 048
     Dates: start: 20040814, end: 20040901
  31. IBUPROFEN [Concomitant]
     Dosage: 400 MG, EVERY 4H, PRN
     Route: 048
     Dates: start: 20040514, end: 20041201
  32. SIMVASTATIN [Concomitant]
     Indication: HYPERLIPIDAEMIA
     Dosage: 40 MG, 1X/DAY
     Route: 048
     Dates: start: 20040714, end: 20070401
  33. MODAFINIL [Interacting]
     Indication: FATIGUE
     Dosage: 100-200 MG, 1X/DAY
     Route: 048
     Dates: start: 20040701, end: 20040914
  34. MODAFINIL [Interacting]
     Dosage: 200 MG, 1X/DAY
     Route: 048
     Dates: start: 20041101, end: 20050304
  35. MODAFINIL [Interacting]
     Dosage: 200 MG, AS REQ'D
     Route: 048
     Dates: start: 20050304, end: 20060801
  36. SILDENAFIL CITRATE [Concomitant]
     Indication: SEXUAL DYSFUNCTION
     Dosage: 50 MG, AS REQ'D
     Route: 048
     Dates: start: 20040922
  37. METHYLPREDNISOLONE [Concomitant]
     Indication: MULTIPLE SCLEROSIS RELAPSE
     Dosage: 1 G, 1X/DAY
     Route: 042
     Dates: start: 20050307, end: 20050309
  38. SODIUM CHLORIDE [Concomitant]
     Dosage: 250 ML, 1X/DAY
     Route: 042
     Dates: start: 20050307, end: 20050309
  39. TERAZOSIN HCL [Concomitant]
     Dosage: 1-2 MG, BED T.
     Route: 048
     Dates: start: 20050205, end: 20050201
  40. TERAZOSIN HCL [Concomitant]
     Dosage: 4 MG, BED T.
     Route: 048
     Dates: start: 20050201, end: 20050813
  41. TERAZOSIN HCL [Concomitant]
     Dosage: 10 MG, BED T.
     Route: 048
     Dates: start: 20050813, end: 20051116
  42. TAMSULOSIN HYDROCHLORIDE [Concomitant]
     Dosage: 4 MG, 1X/DAY
     Route: 048
     Dates: start: 20051116, end: 20060227
  43. FUROSEMIDE [Concomitant]
     Dosage: 40 MG, 1X/DAY, PRN
     Route: 048
     Dates: start: 20060227
  44. POTASSIUM CHLORIDE [Concomitant]
     Dosage: 20 MEQ, 1X/DAY
     Route: 048
     Dates: start: 20060227
  45. BENADRYL [Concomitant]
     Indication: SINUSITIS
     Dosage: 25-50 MG, AS REQ'D
     Route: 048
     Dates: start: 20040515
  46. LISINOPRIL [Concomitant]
     Indication: HYPERTENSION
     Dosage: 10 MG, 1X/DAY
     Route: 048
     Dates: end: 20031201
  47. PREDNISONE [Concomitant]
     Indication: MULTIPLE SCLEROSIS RELAPSE
     Dosage: 500 MG DAILY
     Route: 048
     Dates: start: 20031030, end: 20031101
  48. PREDNISONE [Concomitant]
     Dosage: 300 MG DAILY
     Route: 048
     Dates: start: 20031102, end: 20031102
  49. PREDNISONE [Concomitant]
     Dosage: 200 MG DAILY
     Route: 048
     Dates: start: 20031103, end: 20031103
  50. PREDNISONE [Concomitant]
     Dosage: 100 MG DAILY
     Route: 048
     Dates: start: 20031104, end: 20031104
  51. PREDNISONE [Concomitant]
     Dosage: 50 MG DAILY
     Route: 048
     Dates: start: 20031105, end: 20031105
  52. PREDNISONE [Concomitant]
     Dosage: 25 MG DAILY
     Route: 048
     Dates: start: 20031106, end: 20031107
  53. FAMOTIDINE [Concomitant]
     Indication: PROPHYLAXIS AGAINST GASTROINTESTINAL ULCER
     Dosage: 40 MG, 1X/DAY
     Route: 048
     Dates: start: 20031030, end: 20031119
  54. BENADRYL [Concomitant]
     Dosage: 25-50 MG AS REQ'D
     Route: 048
     Dates: start: 20030901, end: 20040513
  55. DIPHENHYDRAMINE HCL [Concomitant]
     Indication: INSOMNIA
     Dosage: 25-50 MG PRN
     Route: 048
     Dates: start: 20040101, end: 20050205
  56. METHYLPREDNISOLONE [Concomitant]
     Dosage: 1000 MG, 1X/DAY
     Route: 042
     Dates: start: 20051115, end: 20051117
  57. SODIUM CHLORIDE [Concomitant]
     Dosage: 250 ML DAILY
     Route: 042
     Dates: start: 20051115, end: 20051117
  58. CEFDINIR [Concomitant]
     Dosage: 300 MG, 2X/DAY
     Route: 048
     Dates: start: 20040512, end: 20040516
  59. CEFPROZIL [Concomitant]
     Indication: SINUSITIS
     Dosage: 250 MG, 2X/DAY
     Route: 048
     Dates: start: 20040327, end: 20040405
  60. FEXOFENADINE [Concomitant]
     Indication: SINUSITIS
     Dosage: 180 MG, 1X/DAY
     Route: 048
     Dates: start: 20040327, end: 20040402
  61. BUDESONIDE [Concomitant]
     Indication: SINUSITIS
     Dosage: 32 MCG DAILY
     Route: 045
     Dates: start: 20040327, end: 20040330

REACTIONS (1)
  - APPENDICITIS [None]
